FAERS Safety Report 7516086-1 (Version None)
Quarter: 2011Q2

REPORT INFORMATION
  Report Type: 
  Country: None (occurrence: None)
  Receive Date: 20110601
  Receipt Date: 20110520
  Transmission Date: 20111010
  Serious: Yes (Hospitalization)
  Sender: FDA-Public Use
  Company Number: NL-ACTELION-A-CH2011-47940

PATIENT
  Sex: Female

DRUGS (7)
  1. TRACLEER [Suspect]
     Dosage: 125 MG, BID
     Route: 048
     Dates: start: 20100801, end: 20101001
  2. ACTONEL [Concomitant]
  3. CALCIUM D3 [Concomitant]
  4. TRACLEER [Suspect]
     Indication: SKIN ULCER
     Dosage: 62.5 MG, BID
     Route: 048
     Dates: start: 20100701, end: 20100801
  5. ADALAT [Concomitant]
  6. PREDNISONE [Concomitant]
  7. ASCAL [Concomitant]

REACTIONS (1)
  - HEPATIC ENZYME INCREASED [None]
